FAERS Safety Report 5951960-9 (Version None)
Quarter: 2008Q4

REPORT INFORMATION
  Report Type: 
  Country: None (occurrence: None)
  Receive Date: 20081113
  Receipt Date: 20071002
  Transmission Date: 20090506
  Serious: No
  Sender: FDA-Public Use
  Company Number: A0685644A

PATIENT
  Age: 26 Year
  Sex: Male

DRUGS (4)
  1. COREG [Suspect]
     Indication: CARDIOMYOPATHY
     Dosage: 25MG TWICE PER DAY
     Route: 048
  2. CELEXA [Suspect]
     Indication: DRUG USE FOR UNKNOWN INDICATION
     Route: 065
  3. CLONAZEPAM [Concomitant]
  4. PRINIVIL [Concomitant]

REACTIONS (1)
  - BRADYCARDIA [None]
